FAERS Safety Report 5070021-7 (Version None)
Quarter: 2006Q3

REPORT INFORMATION
  Report Type: 
  Country: None (occurrence: None)
  Receive Date: 20060731
  Receipt Date: 20060720
  Transmission Date: 20061208
  Serious: Yes (Hospitalization)
  Sender: FDA-Public Use
  Company Number: 200610651BFR

PATIENT
  Age: 70 Year
  Sex: Male
  Weight: 96 kg

DRUGS (6)
  1. ACARBOSE [Suspect]
     Dosage: ORAL
     Route: 048
     Dates: end: 20060522
  2. GLYBURIDE [Suspect]
     Dosage: 15 MG, TOTAL DAILY, ORAL
     Route: 048
     Dates: end: 20060522
  3. STAGID (METFORMIN EMBONATE^) [Suspect]
     Dosage: 1400 MG, TOTAL DAILY, ORAL
     Route: 048
     Dates: end: 20060522
  4. LIPANTHYL [Concomitant]
  5. KERLONE [Concomitant]
  6. FORTZAAR [Concomitant]

REACTIONS (7)
  - CONDITION AGGRAVATED [None]
  - DEHYDRATION [None]
  - ELECTROLYTE IMBALANCE [None]
  - FALL [None]
  - GASTROENTERITIS [None]
  - HYPOGLYCAEMIA [None]
  - OVERDOSE [None]
